FAERS Safety Report 11068777 (Version 1)
Quarter: 2015Q2

REPORT INFORMATION
  Report Type: Report from Study
  Country: US (occurrence: BR)
  Receive Date: 20150427
  Receipt Date: 20150427
  Transmission Date: 20150821
  Serious: Yes (Other)
  Sender: FDA-Public Use
  Company Number: PHHY2015BR046705

PATIENT
  Sex: Male
  Weight: 120 kg

DRUGS (1)
  1. DIOVAN [Suspect]
     Active Substance: VALSARTAN
     Indication: HYPERTENSION
     Dosage: 1 TABLET, 160 MG, IN THE MORNING
     Route: 065

REACTIONS (2)
  - Prostatic specific antigen increased [Unknown]
  - Prostate cancer [Unknown]
